FAERS Safety Report 23490855 (Version 1)
Quarter: 2024Q1

REPORT INFORMATION
  Report Type: Spontaneous
  Country: US (occurrence: None)
  Receive Date: 20240206
  Receipt Date: 20240206
  Transmission Date: 20240410
  Serious: No
  Sender: FDA-Public Use
  Company Number: US-ROCHE-3322437

PATIENT
  Age: 65 Year
  Sex: Female
  Weight: 77.18 kg

DRUGS (3)
  1. NUTROPIN AQ [Suspect]
     Active Substance: SOMATROPIN
     Indication: Hypopituitarism
     Dosage: ONGOING: YES
     Route: 065
     Dates: start: 20230313
  2. NUTROPIN AQ [Suspect]
     Active Substance: SOMATROPIN
  3. NORDITROPIN [Concomitant]
     Active Substance: SOMATROPIN

REACTIONS (3)
  - Device issue [Unknown]
  - Incorrect dose administered [Unknown]
  - No adverse event [Unknown]
